FAERS Safety Report 9883766 (Version 2)
Quarter: 2014Q3

REPORT INFORMATION
  Report Type: Spontaneous
  Country: US (occurrence: US)
  Receive Date: 20140210
  Receipt Date: 20140812
  Transmission Date: 20150326
  Serious: Yes (Hospitalization, Other)
  Sender: FDA-Public Use
  Company Number: US-009507513-1402USA003561

PATIENT
  Sex: Female
  Weight: 75.28 kg

DRUGS (1)
  1. NUVARING [Suspect]
     Active Substance: ETHINYL ESTRADIOL\ETONOGESTREL
     Dosage: UNK
     Route: 067
     Dates: start: 20050811, end: 20060215

REACTIONS (4)
  - Renal surgery [Unknown]
  - Knee operation [Unknown]
  - Intracranial venous sinus thrombosis [Unknown]
  - Appendicectomy [Unknown]

NARRATIVE: CASE EVENT DATE: 20060220
